FAERS Safety Report 4539245-9 (Version None)
Quarter: 2004Q4

REPORT INFORMATION
  Report Type: 
  Country: None (occurrence: None)
  Receive Date: 20041228
  Receipt Date: 20041216
  Transmission Date: 20050328
  Serious: Yes (Other)
  Sender: FDA-Public Use
  Company Number: US-JNJFOC-20041205183

PATIENT
  Sex: Male

DRUGS (10)
  1. REMICADE [Suspect]
     Route: 042
  2. REMICADE [Suspect]
     Route: 042
  3. REMICADE [Suspect]
     Indication: RHEUMATOID ARTHRITIS
     Dosage: SECOND INFUSION.
     Route: 042
  4. BEXTRA [Concomitant]
  5. METHOTREXATE [Concomitant]
  6. METFORMIN HCL [Concomitant]
  7. DIOVAN [Concomitant]
  8. ELAVIL [Concomitant]
  9. FOLIC ACID [Concomitant]
  10. METOPROLOL TARTRATE [Concomitant]

REACTIONS (3)
  - HYPOAESTHESIA [None]
  - MUSCLE CRAMP [None]
  - PARAESTHESIA [None]
